FAERS Safety Report 4955478-1 (Version None)
Quarter: 2006Q1

REPORT INFORMATION
  Report Type: 
  Country: None (occurrence: None)
  Receive Date: 20060328
  Receipt Date: 20051213
  Transmission Date: 20060701
  Serious: Yes (Hospitalization, Other)
  Sender: FDA-Public Use
  Company Number: RU-GLAXOSMITHKLINE-B0403622A

PATIENT
  Age: 72 Year
  Sex: Male
  Weight: 75 kg

DRUGS (3)
  1. DUTASTERIDE [Suspect]
     Dosage: .5MG PER DAY
     Route: 048
     Dates: start: 20041117, end: 20051213
  2. TRENTAL [Concomitant]
     Dates: start: 20030101
  3. ACETYLSALICYLIC ACID SRT [Concomitant]
     Dates: start: 20030101

REACTIONS (3)
  - CHRONIC HEPATITIS [None]
  - JAUNDICE [None]
  - OCULAR ICTERUS [None]
